FAERS Safety Report 4526586-4 (Version None)
Quarter: 2004Q4

REPORT INFORMATION
  Report Type: 
  Country: None (occurrence: None)
  Receive Date: 20041214
  Receipt Date: 20041202
  Transmission Date: 20050328
  Serious: Yes (Other)
  Sender: FDA-Public Use
  Company Number: JP-JNJFOC-20040701116

PATIENT
  Sex: Male

DRUGS (4)
  1. RISPERDAL [Suspect]
     Indication: SCHIZOPHRENIA
     Route: 049
  2. SENNOSIDE [Concomitant]
     Indication: CONSTIPATION
     Route: 049
  3. FLUNITRAZEPAM [Concomitant]
     Route: 049
  4. VALPROATE SODIUM [Concomitant]
     Indication: EPILEPSY
     Route: 049

REACTIONS (1)
  - HAEMOGLOBIN DECREASED [None]
